FAERS Safety Report 21937046 (Version 1)
Quarter: 2023Q1

REPORT INFORMATION
  Report Type: Spontaneous
  Country: BE (occurrence: None)
  Receive Date: 20230201
  Receipt Date: 20230201
  Transmission Date: 20230417
  Serious: Yes (Other)
  Sender: FDA-Public Use
  Company Number: 2023A019209

PATIENT
  Sex: Female
  Weight: 91 kg

DRUGS (5)
  1. FULVESTRANT [Suspect]
     Active Substance: FULVESTRANT
     Indication: Invasive breast carcinoma
     Dosage: UNK
     Route: 030
     Dates: start: 201903, end: 202012
  2. PALBOCICLIB [Suspect]
     Active Substance: PALBOCICLIB
     Indication: Breast cancer metastatic
     Dosage: 1 PILL/DAY 21/28 DAYS, DOSE 125 MG -} DOSE 100 MG
     Route: 048
     Dates: start: 20190301, end: 20201220
  3. PALBOCICLIB [Suspect]
     Active Substance: PALBOCICLIB
     Indication: Invasive breast carcinoma
     Dosage: 1 PILL/DAY 21/28 DAYS, DOSE 125 MG -} DOSE 100 MG
     Route: 048
     Dates: start: 20190301, end: 20201220
  4. DENOSUMAB [Concomitant]
     Active Substance: DENOSUMAB
     Indication: Metastases to bone
     Dosage: 120 MG, MONTHLY
     Route: 058
     Dates: start: 20181001
  5. DENOSUMAB [Concomitant]
     Active Substance: DENOSUMAB
     Indication: Invasive breast carcinoma
     Dosage: 120 MG, MONTHLY
     Route: 058
     Dates: start: 20181001

REACTIONS (2)
  - Neutropenia [Unknown]
  - Neoplasm progression [Recovered/Resolved]

NARRATIVE: CASE EVENT DATE: 20190401
